FAERS Safety Report 7529269-1 (Version None)
Quarter: 2011Q2

REPORT INFORMATION
  Report Type: 
  Country: None (occurrence: None)
  Receive Date: 20110607
  Receipt Date: 20110601
  Transmission Date: 20111010
  Serious: Yes (Other)
  Sender: FDA-Public Use
  Company Number: AR-ROCHE-656986

PATIENT
  Sex: Female
  Weight: 88 kg

DRUGS (8)
  1. RIBAVIRIN [Suspect]
     Indication: HEPATITIS C
     Route: 048
     Dates: start: 20090421, end: 20090924
  2. BLINDED BI 201335 [Suspect]
     Indication: HEPATITIS C
     Route: 048
     Dates: start: 20090421, end: 20090924
  3. POTASSIUM CHLORIDE [Concomitant]
     Route: 048
     Dates: start: 20090704
  4. MAGNESIUM SULFATE [Concomitant]
     Route: 048
     Dates: start: 20090704
  5. PEGINTERFERON ALFA-2A [Suspect]
     Indication: HEPATITIS C
     Dosage: STRENGTH: 180 UG/ML, FORMULATION: SOLUTUION FOR INJECTION
     Route: 058
     Dates: start: 20090421, end: 20090924
  6. FURSEMIDE [Concomitant]
     Indication: FLUID RETENTION
     Route: 048
     Dates: start: 20090101
  7. LEVOTHYROXINE SODIUM [Concomitant]
     Dosage: DAILY
     Route: 048
  8. METHIMAZOLE [Concomitant]
     Dosage: DAILY
     Route: 048

REACTIONS (1)
  - ARTERIOSPASM CORONARY [None]
